FAERS Safety Report 6762402-8 (Version None)
Quarter: 2010Q2

REPORT INFORMATION
  Report Type: 
  Country: None (occurrence: None)
  Receive Date: 20100517
  Receipt Date: 20100512
  Transmission Date: 20101027
  Serious: Yes (Other)
  Sender: FDA-Public Use
  Company Number: 2010022191

PATIENT
  Sex: Female

DRUGS (1)
  1. VIVAGLOBIN [Suspect]
     Indication: SELECTIVE IGG SUBCLASS DEFICIENCY
     Dosage: 7.5 G, 7.5 GRAMS (50 ML WEEKLY IN 4 SITES OVER HOURS SUBCUTANEOUS)
     Route: 058
     Dates: start: 20091101

REACTIONS (1)
  - CARDIAC FAILURE [None]
